FAERS Safety Report 8253417-1 (Version None)
Quarter: 2012Q2

REPORT INFORMATION
  Report Type: 
  Country: None (occurrence: None)
  Receive Date: 20120402
  Receipt Date: 20120313
  Transmission Date: 20120825
  Serious: No
  Sender: FDA-Public Use
  Company Number: US-AMGEN-USASP2012016397

PATIENT
  Age: 65 Year
  Sex: Female

DRUGS (4)
  1. ENBREL [Suspect]
     Indication: RHEUMATOID ARTHRITIS
     Dosage: 25 MG, QWK
     Dates: start: 20100909
  2. ENBREL [Suspect]
     Indication: PSORIASIS
  3. REMICADE [Concomitant]
     Dosage: UNK
  4. METHOTREXATE [Concomitant]
     Dosage: UNK

REACTIONS (5)
  - CHROMATURIA [None]
  - MALAISE [None]
  - PYREXIA [None]
  - PSORIASIS [None]
  - BLADDER DISORDER [None]
